FAERS Safety Report 6079458-0 (Version None)
Quarter: 2009Q1

REPORT INFORMATION
  Report Type: 
  Country: None (occurrence: None)
  Receive Date: 20090216
  Receipt Date: 20090206
  Transmission Date: 20090719
  Serious: Yes (Hospitalization, Other)
  Sender: FDA-Public Use
  Company Number: US-ABBOTT-09P-163-0502035-00

PATIENT
  Sex: Male
  Weight: 67.192 kg

DRUGS (1)
  1. LUPRON DEPOT [Suspect]
     Indication: PROSTATE CANCER
     Dosage: 2 SHOTS TOTAL
     Route: 030
     Dates: start: 20040101, end: 20040101

REACTIONS (7)
  - DIZZINESS [None]
  - INSOMNIA [None]
  - LIMB DISCOMFORT [None]
  - OEDEMA PERIPHERAL [None]
  - PANCYTOPENIA [None]
  - PRURITUS [None]
  - RASH [None]
